FAERS Safety Report 7916883-4 (Version None)
Quarter: 2011Q4

REPORT INFORMATION
  Report Type: 
  Country: None (occurrence: None)
  Receive Date: 20111116
  Receipt Date: 20111111
  Transmission Date: 20120403
  Serious: Yes (Hospitalization, Disabling)
  Sender: FDA-Public Use
  Company Number: NL-GENZYME-CLOF-1001703

PATIENT
  Sex: Male
  Weight: 90 kg

DRUGS (4)
  1. AMSACRINE [Suspect]
     Indication: ACUTE MYELOID LEUKAEMIA
     Dosage: 276 MG, UNK
     Route: 042
     Dates: start: 20110415, end: 20110417
  2. VFEND [Concomitant]
     Indication: ASPERGILLOSIS
     Dosage: 400 MG, UNK
     Route: 048
     Dates: start: 20110428, end: 20110518
  3. EVOLTRA [Suspect]
     Indication: ACUTE MYELOID LEUKAEMIA
     Dosage: 23 MG, UNK
     Route: 042
     Dates: start: 20110412, end: 20110416
  4. CYTARABINE [Suspect]
     Indication: ACUTE MYELOID LEUKAEMIA
     Dosage: 4600 MG, UNK
     Route: 042
     Dates: start: 20110412, end: 20110417

REACTIONS (3)
  - INAPPROPRIATE ANTIDIURETIC HORMONE SECRETION [None]
  - LUNG INFECTION [None]
  - INFECTION [None]
